FAERS Safety Report 7278384-9 (Version None)
Quarter: 2011Q1

REPORT INFORMATION
  Report Type: 
  Country: None (occurrence: None)
  Receive Date: 20110207
  Receipt Date: 20110126
  Transmission Date: 20110831
  Serious: Yes (Life-Threatening)
  Sender: FDA-Public Use
  Company Number: JP-MERCK-1101USA03583

PATIENT
  Age: 41 Year
  Sex: Female

DRUGS (5)
  1. LIPITOR [Suspect]
     Indication: DYSLIPIDAEMIA
     Dosage: DAILY DOSAGE UNKNOWN
     Route: 048
  2. TAKEPRON [Suspect]
     Indication: GASTRIC ULCER
     Dosage: DAILY DOSAGE UNKNOWN
     Route: 048
  3. PREDONINE [Suspect]
     Indication: STILL'S DISEASE ADULT ONSET
     Dosage: DAILY DOSAGE UNKNOWN
     Route: 048
  4. ASPIRIN [Suspect]
     Indication: REVERSIBLE ISCHAEMIC NEUROLOGICAL DEFICIT
     Dosage: DAILY DOSAGE UNKNOWN
     Route: 048
  5. FOSAMAX [Suspect]
     Indication: OSTEOPOROSIS
     Route: 048

REACTIONS (1)
  - AGRANULOCYTOSIS [None]
